FAERS Safety Report 11443863 (Version 1)
Quarter: 2015Q3

REPORT INFORMATION
  Report Type: Report from Study
  Country: US (occurrence: US)
  Receive Date: 20150901
  Receipt Date: 20150901
  Transmission Date: 20151125
  Serious: No
  Sender: FDA-Public Use
  Company Number: US-AMGEN-USASL2015087894

PATIENT
  Age: 56 Year
  Sex: Male

DRUGS (1)
  1. ENBREL [Suspect]
     Active Substance: ETANERCEPT
     Indication: PSORIASIS
     Dosage: UNK
     Route: 065
     Dates: start: 2014, end: 2015

REACTIONS (5)
  - Condition aggravated [Unknown]
  - Sinusitis [Unknown]
  - Arthralgia [Unknown]
  - Swelling [Unknown]
  - Psoriasis [Unknown]

NARRATIVE: CASE EVENT DATE: 2015
